FAERS Safety Report 19566310 (Version 1)
Quarter: 2021Q3

REPORT INFORMATION
  Report Type: Spontaneous
  Country: CN (occurrence: CN)
  Receive Date: 20210714
  Receipt Date: 20210714
  Transmission Date: 20211014
  Serious: Yes (Other)
  Sender: FDA-Public Use
  Company Number: CN-ANIPHARMA-2021-CN-000183

PATIENT
  Age: 3 Year
  Sex: Female
  Weight: 16 kg

DRUGS (4)
  1. VANCOMYCIN HYDROCHLORIDE (NON?SPECIFIC) [Suspect]
     Active Substance: VANCOMYCIN HYDROCHLORIDE
     Indication: INFECTION
     Dosage: 200 MG EVERY 8 HOURS
     Route: 042
  2. FLUCONAZOLE. [Concomitant]
     Active Substance: FLUCONAZOLE
     Dosage: 48 MG DAILY
  3. MEROPENEM. [Concomitant]
     Active Substance: MEROPENEM
     Dosage: 300 MG EVERY 8 HOURS
     Route: 042
  4. IMMUNOGLOBULIN [Concomitant]
     Route: 042

REACTIONS (1)
  - Seizure [Unknown]
